FAERS Safety Report 4397053-6 (Version None)
Quarter: 2004Q3

REPORT INFORMATION
  Report Type: 
  Country: None (occurrence: None)
  Receive Date: 20040708
  Receipt Date: 20040623
  Transmission Date: 20050211
  Serious: Yes (Hospitalization)
  Sender: FDA-Public Use
  Company Number: FABR-10226

PATIENT
  Age: 58 Year
  Sex: Male
  Weight: 74 kg

DRUGS (7)
  1. FABRAZYME [Suspect]
     Indication: FABRY'S DISEASE
     Dosage: 2 MG/KG Q2WKS IV
     Route: 042
     Dates: start: 20021211
  2. SIMVASTATIN [Concomitant]
  3. ASPIRIN [Concomitant]
  4. AMLODIPINE [Concomitant]
  5. MIGRALEVE [Concomitant]
  6. ANADIN [Concomitant]
  7. DISTALGESIC [Concomitant]

REACTIONS (10)
  - ANGINA PECTORIS [None]
  - ANGINA UNSTABLE [None]
  - BRADYCARDIA [None]
  - CARDIAC DISORDER [None]
  - DYSPNOEA [None]
  - EXTRASYSTOLES [None]
  - IMPLANTABLE DEFIBRILLATOR INSERTION [None]
  - MITRAL VALVE INCOMPETENCE [None]
  - VENTRICULAR DYSFUNCTION [None]
  - VENTRICULAR TACHYCARDIA [None]
